FAERS Safety Report 13652658 (Version 1)
Quarter: 2017Q2

REPORT INFORMATION
  Report Type: Spontaneous
  Country: US (occurrence: US)
  Receive Date: 20170614
  Receipt Date: 20170614
  Transmission Date: 20170830
  Serious: No
  Sender: FDA-Public Use
  Company Number: US-ROCHE-1142573

PATIENT
  Sex: Female

DRUGS (1)
  1. XELODA [Suspect]
     Active Substance: CAPECITABINE
     Indication: PRODUCT USED FOR UNKNOWN INDICATION
     Dosage: 3 ORAL 2 TMES A DAY
     Route: 048
     Dates: start: 20120901

REACTIONS (3)
  - Vision blurred [Unknown]
  - Visual impairment [Unknown]
  - Pain in extremity [Unknown]
